FAERS Safety Report 20290619 (Version 1)
Quarter: 2022Q1

REPORT INFORMATION
  Report Type: Spontaneous
  Country: RU (occurrence: None)
  Receive Date: 20220104
  Receipt Date: 20220104
  Transmission Date: 20220424
  Serious: Yes (Hospitalization)
  Sender: FDA-Public Use
  Company Number: 2021A907175

PATIENT
  Age: 61 Year
  Sex: Male
  Weight: 110 kg

DRUGS (2)
  1. SYMBICORT [Suspect]
     Active Substance: BUDESONIDE\FORMOTEROL FUMARATE DIHYDRATE
     Indication: Dyspnoea
     Dosage: 2 INHALATIONS 2 TIMES A DAY
     Route: 055
  2. UMIFENOVIR [Concomitant]
     Active Substance: UMIFENOVIR
     Dosage: UNKNOWN
     Route: 065

REACTIONS (2)
  - COVID-19 pneumonia [Unknown]
  - Off label use [Recovered/Resolved]
